FAERS Safety Report 22114584 (Version 1)
Quarter: 2023Q1

REPORT INFORMATION
  Report Type: Spontaneous
  Country: US (occurrence: US)
  Receive Date: 20230320
  Receipt Date: 20230320
  Transmission Date: 20230417
  Serious: No
  Sender: FDA-Public Use
  Company Number: US-SA-SAC20230316001495

PATIENT

DRUGS (1)
  1. TAXOTERE [Suspect]
     Active Substance: DOCETAXEL
     Indication: Eye disorder
     Dosage: UNK
     Route: 065

REACTIONS (2)
  - Lacrimation increased [Unknown]
  - Product use in unapproved indication [Unknown]
